FAERS Safety Report 6884651-0 (Version None)
Quarter: 2010Q3

REPORT INFORMATION
  Report Type: 
  Country: None (occurrence: None)
  Receive Date: 20100729
  Receipt Date: 20070727
  Transmission Date: 20110219
  Serious: Yes (Other)
  Sender: FDA-Public Use
  Company Number: US-PFIZER INC-2007063013

PATIENT
  Sex: Male
  Weight: 81.818 kg

DRUGS (5)
  1. CELEBREX [Suspect]
     Indication: JOINT SPRAIN
     Dates: start: 20070701
  2. VITAMINS [Concomitant]
  3. ACETAMINOPHEN [Concomitant]
     Dosage: NA EVERY 8 HOURS
  4. NIACIN [Concomitant]
  5. ACETYLSALICYLIC ACID SRT [Concomitant]

REACTIONS (1)
  - HYPERTENSION [None]
